FAERS Safety Report 8337971-7 (Version None)
Quarter: 2012Q2

REPORT INFORMATION
  Report Type: 
  Country: None (occurrence: None)
  Receive Date: 20120504
  Receipt Date: 20120424
  Transmission Date: 20120825
  Serious: Yes (Hospitalization, Other)
  Sender: FDA-Public Use
  Company Number: ES-BRISTOL-MYERS SQUIBB COMPANY-16407397

PATIENT
  Age: 79 Year
  Sex: Female

DRUGS (14)
  1. DASATINIB [Suspect]
     Indication: CHRONIC MYELOID LEUKAEMIA
     Dosage: APR2009-JUL2009,100MG JUL2009-JAN2010,50MG JAN2010-FEB2012,40MG
     Dates: start: 20090401, end: 20120214
  2. NITROGLYCERIN [Concomitant]
  3. PREDNISONE TAB [Concomitant]
  4. FLUTICASONE PROPIONATE/SALMETEROL [Concomitant]
  5. FUROSEMIDE [Concomitant]
  6. TORSEMIDE [Concomitant]
  7. BISOPROLOL FUMARATE [Concomitant]
  8. VENTOLIN [Concomitant]
  9. ATORVASTATIN CALCIUM [Concomitant]
  10. IBUPROFEN [Concomitant]
  11. OMEPRAZOLE [Concomitant]
  12. ASPIRIN [Concomitant]
  13. ARANESP [Concomitant]
  14. METHYLPREDNISOLONE [Concomitant]

REACTIONS (5)
  - CARDIOPULMONARY FAILURE [None]
  - LOBAR PNEUMONIA [None]
  - PLEURAL EFFUSION [None]
  - ANAEMIA [None]
  - THROMBOCYTOPENIA [None]
